FAERS Safety Report 15583273 (Version 1)
Quarter: 2018Q4

REPORT INFORMATION
  Report Type: Spontaneous
  Country: US (occurrence: US)
  Receive Date: 20181031
  Receipt Date: 20181031
  Transmission Date: 20190205
  Serious: No
  Sender: FDA-Public Use
  Company Number: None

PATIENT
  Age: 73 Year
  Sex: Male
  Weight: 87.09 kg

DRUGS (5)
  1. VITAMIN D3 [Concomitant]
     Active Substance: CHOLECALCIFEROL
  2. TAMSULOSIN [Concomitant]
     Active Substance: TAMSULOSIN
  3. WARFARIN [Concomitant]
     Active Substance: WARFARIN
  4. LEVOTHYROXIN [Concomitant]
     Active Substance: LEVOTHYROXINE
  5. LEVOFLOXACIN. [Suspect]
     Active Substance: LEVOFLOXACIN
     Indication: INFECTION PROPHYLAXIS
     Dosage: ?          QUANTITY:1 DF DOSAGE FORM;?
     Route: 048
     Dates: start: 20180504, end: 20180510

REACTIONS (5)
  - Rash [None]
  - Tendon rupture [None]
  - Unevaluable event [None]
  - Urticaria [None]
  - Loss of personal independence in daily activities [None]

NARRATIVE: CASE EVENT DATE: 20180506
